FAERS Safety Report 17362675 (Version 1)
Quarter: 2020Q1

REPORT INFORMATION
  Report Type: Spontaneous
  Country: US (occurrence: US)
  Receive Date: 20200203
  Receipt Date: 20200203
  Transmission Date: 20200409
  Serious: Yes (Other)
  Sender: FDA-Public Use
  Company Number: US-VERTEX PHARMACEUTICALS-2020-001751

PATIENT
  Age: 37 Year
  Sex: Female

DRUGS (1)
  1. SYMDEKO [Suspect]
     Active Substance: IVACAFTOR\TEZACAFTOR
     Indication: CYSTIC FIBROSIS
     Dosage: UNK
     Route: 048

REACTIONS (7)
  - Staphylococcal sepsis [Unknown]
  - Hypercoagulation [Unknown]
  - Pneumothorax [Unknown]
  - Obstructive airways disorder [Unknown]
  - Mycobacterium abscessus infection [Recovered/Resolved]
  - Burkholderia cepacia complex infection [Unknown]
  - Pulmonary embolism [Not Recovered/Not Resolved]
